FAERS Safety Report 11656900 (Version 3)
Quarter: 2016Q1

REPORT INFORMATION
  Report Type: Report from Study
  Country: JP (occurrence: JP)
  Receive Date: 20151023
  Receipt Date: 20160204
  Transmission Date: 20160525
  Serious: Yes (Death, Hospitalization)
  Sender: FDA-Public Use
  Company Number: JP-EISAI MEDICAL RESEARCH-EC-2015-011448

PATIENT
  Age: 68 Year
  Sex: Female
  Weight: 36 kg

DRUGS (2)
  1. LENVIMA [Suspect]
     Active Substance: LENVATINIB
     Indication: THYROID CANCER
     Route: 048
     Dates: start: 20150818, end: 20151001
  2. LENVIMA [Suspect]
     Active Substance: LENVATINIB
     Route: 048
     Dates: start: 20151002, end: 20151015

REACTIONS (2)
  - Tracheal fistula [Recovered/Resolved with Sequelae]
  - Asphyxia [Fatal]

NARRATIVE: CASE EVENT DATE: 20151016
